FAERS Safety Report 4770762-2 (Version None)
Quarter: 2005Q3

REPORT INFORMATION
  Report Type: 
  Country: None (occurrence: None)
  Receive Date: 20050914
  Receipt Date: 20041215
  Transmission Date: 20060218
  Serious: Yes (Other)
  Sender: FDA-Public Use
  Company Number: 2004114980

PATIENT
  Age: 16 Year
  Sex: Male
  Weight: 55 kg

DRUGS (8)
  1. ARIAMYCIN CS                                     (DOXORUBICIN HYDROCHL [Suspect]
     Indication: NON-HODGKIN'S LYMPHOMA
     Dosage: INTRAVENOUS
     Route: 042
     Dates: start: 19870101, end: 19870101
  2. METHOTREXATE [Suspect]
     Indication: NON-HODGKIN'S LYMPHOMA
     Dosage: INTRATHECAL
     Route: 037
     Dates: start: 19870101, end: 19870101
  3. PREDNISONE [Suspect]
     Indication: NON-HODGKIN'S LYMPHOMA
     Dosage: INTRATHECAL
     Route: 037
     Dates: start: 19870101, end: 19870101
  4. CYTARABINE [Suspect]
     Indication: NON-HODGKIN'S LYMPHOMA
     Dosage: INTRAVENOUS
     Route: 042
     Dates: start: 19870101, end: 19870101
  5. ASPARAGINASE (ASPARAGINASE) [Suspect]
     Indication: NON-HODGKIN'S LYMPHOMA
     Dosage: INTRAVENOUS
     Route: 042
     Dates: start: 19870101, end: 19870101
  6. CYCLOPHOSPHAMIDE [Suspect]
     Indication: NON-HODGKIN'S LYMPHOMA
     Dates: start: 19870101, end: 19870101
  7. MERCAPTOPURINE [Suspect]
     Indication: NON-HODGKIN'S LYMPHOMA
     Dosage: INTRAVENOUS
     Route: 042
     Dates: start: 19870101, end: 19870101
  8. VINCRISTINE [Suspect]
     Indication: NON-HODGKIN'S LYMPHOMA
     Dosage: INTRAVENOUS
     Route: 042
     Dates: start: 19870101, end: 19870101

REACTIONS (6)
  - CHORIORETINAL ATROPHY [None]
  - COLOUR BLINDNESS [None]
  - FUNDOSCOPY ABNORMAL [None]
  - RETINAL DYSTROPHY [None]
  - SCOTOMA [None]
  - VISUAL FIELD DEFECT [None]
